FAERS Safety Report 10230565 (Version 1)
Quarter: 2014Q2

REPORT INFORMATION
  Report Type: Spontaneous
  Country: US (occurrence: US)
  Receive Date: 20140611
  Receipt Date: 20140611
  Transmission Date: 20141212
  Serious: No
  Sender: FDA-Public Use
  Company Number: US-INCYTE CORPORATION-2014IN001234

PATIENT
  Age: 71 Year
  Sex: Male

DRUGS (2)
  1. JAKAFI [Suspect]
     Indication: MYELOFIBROSIS
     Dosage: 20 MG, BID
     Route: 048
     Dates: start: 20140312
  2. JAKAFI [Suspect]
     Dosage: 20 MG, BID
     Route: 048

REACTIONS (3)
  - Nasopharyngitis [Unknown]
  - Haematocrit decreased [Unknown]
  - White blood cell count decreased [Unknown]
